FAERS Safety Report 9433019 (Version 3)
Quarter: 2015Q4

REPORT INFORMATION
  Report Type: Spontaneous
  Country: US (occurrence: US)
  Receive Date: 20130731
  Receipt Date: 20151209
  Transmission Date: 20160305
  Serious: Yes (Hospitalization, Other)
  Sender: FDA-Public Use
  Company Number: US-BAYER-2013-091089

PATIENT
  Age: 38 Year
  Sex: Female
  Weight: 49.89 kg

DRUGS (4)
  1. EFFEXOR [Concomitant]
     Active Substance: VENLAFAXINE HYDROCHLORIDE
  2. YAZ [Suspect]
     Active Substance: DROSPIRENONE\ETHINYL ESTRADIOL
  3. CYCLOBENZAPRINE [Concomitant]
     Active Substance: CYCLOBENZAPRINE
  4. LEVAQUIN [Concomitant]
     Active Substance: LEVOFLOXACIN

REACTIONS (22)
  - Seizure [None]
  - Cardiac failure [None]
  - Asthenia [None]
  - Impaired driving ability [None]
  - Emotional distress [None]
  - Pneumonia [None]
  - Intracardiac thrombus [None]
  - Vomiting [None]
  - Hypertension [None]
  - Hearing impaired [None]
  - Thrombosis [None]
  - Embolic stroke [None]
  - Fatigue [None]
  - Stillbirth [None]
  - Maternal exposure before pregnancy [None]
  - Dyspnoea [None]
  - Injury [None]
  - Loss of consciousness [None]
  - Cerebral infarction [None]
  - Speech disorder [None]
  - Hemiplegia [None]
  - Confusional state [None]

NARRATIVE: CASE EVENT DATE: 201006
